FAERS Safety Report 6041792-8 (Version None)
Quarter: 2009Q1

REPORT INFORMATION
  Report Type: 
  Country: None (occurrence: None)
  Receive Date: 20090116
  Receipt Date: 20090106
  Transmission Date: 20090719
  Serious: Yes (Hospitalization)
  Sender: FDA-Public Use
  Company Number: US-BAXTER-2009BH000212

PATIENT
  Age: 60 Year
  Sex: Female
  Weight: 63 kg

DRUGS (3)
  1. DIANEAL [Suspect]
     Indication: PERITONEAL DIALYSIS
     Route: 033
     Dates: start: 20080601, end: 20090105
  2. DIANEAL [Suspect]
     Route: 033
     Dates: start: 20090105, end: 20090107
  3. DIANEAL [Suspect]
     Route: 033
     Dates: start: 20090107

REACTIONS (5)
  - ABDOMINAL DISTENSION [None]
  - ANAEMIA [None]
  - DYSPNOEA [None]
  - HYPOAESTHESIA [None]
  - SPINAL COLUMN STENOSIS [None]
